FAERS Safety Report 6312350-2 (Version None)
Quarter: 2009Q3

REPORT INFORMATION
  Report Type: 
  Country: None (occurrence: None)
  Receive Date: 20090817
  Receipt Date: 20090807
  Transmission Date: 20100115
  Serious: Yes (Other)
  Sender: FDA-Public Use
  Company Number: US-ABBOTT-09P-163-0590271-00

PATIENT
  Sex: Male
  Weight: 78.088 kg

DRUGS (10)
  1. NIASPAN [Suspect]
     Indication: BLOOD CHOLESTEROL INCREASED
     Dates: start: 20080901
  2. NIASPAN [Suspect]
     Indication: BLOOD TRIGLYCERIDES INCREASED
  3. LIPITOR [Suspect]
     Indication: DRUG USE FOR UNKNOWN INDICATION
  4. ASPIRIN [Concomitant]
     Indication: CARDIOVASCULAR EVENT PROPHYLAXIS
     Dosage: 325MG DAILY
     Route: 048
  5. XANAX [Concomitant]
     Indication: INSOMNIA
     Route: 048
  6. PLAVIX [Concomitant]
     Indication: ANTICOAGULANT THERAPY
     Route: 048
  7. LYRICA [Concomitant]
     Indication: NERVE INJURY
     Route: 048
  8. CARVEDILOL [Concomitant]
     Indication: UNEVALUABLE EVENT
     Route: 048
  9. SIMVASTATIN [Concomitant]
     Indication: DRUG USE FOR UNKNOWN INDICATION
     Route: 048
  10. METFORMIN HCL [Concomitant]
     Indication: DRUG USE FOR UNKNOWN INDICATION

REACTIONS (8)
  - CHEST PAIN [None]
  - DIABETES MELLITUS [None]
  - FEELING HOT [None]
  - FLUSHING [None]
  - MIDDLE INSOMNIA [None]
  - MUSCULAR WEAKNESS [None]
  - MYALGIA [None]
  - PAIN IN EXTREMITY [None]
